FAERS Safety Report 22289175 (Version 1)
Quarter: 2023Q2

REPORT INFORMATION
  Report Type: Spontaneous
  Country: AU (occurrence: AU)
  Receive Date: 20230505
  Receipt Date: 20230505
  Transmission Date: 20230722
  Serious: Yes (Death, Hospitalization)
  Sender: FDA-Public Use
  Company Number: AU-ABBVIE-4752931

PATIENT
  Age: 61 Year
  Sex: Male

DRUGS (2)
  1. VIEKIRA PAK [Suspect]
     Active Substance: DASABUVIR\OMBITASVIR\PARITAPREVIR\RITONAVIR
     Indication: Product used for unknown indication
     Route: 048
  2. RIBAVIRIN [Concomitant]
     Active Substance: RIBAVIRIN
     Indication: Product used for unknown indication
     Dates: start: 2015

REACTIONS (9)
  - Hepatocellular carcinoma [Fatal]
  - Hypercalcaemia [Not Recovered/Not Resolved]
  - Hepatic function abnormal [Unknown]
  - Unevaluable event [Unknown]
  - Infection parasitic [Unknown]
  - Intensive care [Unknown]
  - Abdominal pain [Not Recovered/Not Resolved]
  - Hospitalisation [Unknown]
  - Illness [Unknown]

NARRATIVE: CASE EVENT DATE: 20220101
